FAERS Safety Report 21927004 (Version 1)
Quarter: 2023Q1

REPORT INFORMATION
  Report Type: Spontaneous
  Country: IN (occurrence: IN)
  Receive Date: 20230130
  Receipt Date: 20230130
  Transmission Date: 20230418
  Serious: Yes (Other)
  Sender: FDA-Public Use
  Company Number: IN-PFIZER INC-PV202300016169

PATIENT
  Age: 71 Year
  Sex: Female

DRUGS (4)
  1. CRIZOTINIB [Suspect]
     Active Substance: CRIZOTINIB
     Route: 048
  2. CARBOPLATIN [Suspect]
     Active Substance: CARBOPLATIN
     Dosage: 2 CYCLES (PEM + CARBO)
     Dates: start: 20221210
  3. PEMETREXED [Suspect]
     Active Substance: PEMETREXED
     Dosage: 2 CYCLES (PEM + CARBO)
     Dates: start: 20221210
  4. CERITINIB [Suspect]
     Active Substance: CERITINIB
     Dosage: 450MG/D

REACTIONS (2)
  - Brain oedema [Unknown]
  - Disorientation [Unknown]
